FAERS Safety Report 5405225-4 (Version None)
Quarter: 2007Q3

REPORT INFORMATION
  Report Type: 
  Country: None (occurrence: None)
  Receive Date: 20070803
  Receipt Date: 20070724
  Transmission Date: 20080115
  Serious: Yes (Hospitalization)
  Sender: FDA-Public Use
  Company Number: US-ROCHE-494196

PATIENT
  Age: 52 Year
  Sex: Female
  Weight: 49.9 kg

DRUGS (4)
  1. PEGASYS [Suspect]
     Route: 058
     Dates: start: 20070320
  2. COPEGUS [Suspect]
     Route: 065
     Dates: start: 20070320
  3. PREDNISONE TAB [Suspect]
     Indication: RASH
     Route: 065
  4. PREDNISONE TAB [Suspect]
     Route: 065

REACTIONS (15)
  - ADVERSE DRUG REACTION [None]
  - BACK PAIN [None]
  - DRY MOUTH [None]
  - DRY SKIN [None]
  - EPISTAXIS [None]
  - FATIGUE [None]
  - INSOMNIA [None]
  - MOUTH HAEMORRHAGE [None]
  - NEPHROTIC SYNDROME [None]
  - PSYCHOMOTOR HYPERACTIVITY [None]
  - RASH [None]
  - STOMATITIS [None]
  - THIRST [None]
  - WEIGHT DECREASED [None]
  - WHITE BLOOD CELL COUNT DECREASED [None]
